FAERS Safety Report 17849955 (Version 1)
Quarter: 2020Q2

REPORT INFORMATION
  Report Type: Spontaneous
  Country: CH (occurrence: CH)
  Receive Date: 20200602
  Receipt Date: 20200602
  Transmission Date: 20200714
  Serious: Yes (Other)
  Sender: FDA-Public Use
  Company Number: CH-TEVA-2020-CH-1242885

PATIENT
  Age: 55 Year
  Sex: Male

DRUGS (2)
  1. CO-AMOXI MEPHA 100/200 MG [Suspect]
     Active Substance: AMOXICILLIN\CLAVULANATE POTASSIUM
     Route: 041
     Dates: start: 20200323, end: 20200328
  2. CO-AMOXI MEPHA 100/200 MG [Suspect]
     Active Substance: AMOXICILLIN\CLAVULANATE POTASSIUM
     Dosage: CO-AMOXI MEPHA 875/125 MG
     Route: 048
     Dates: start: 20200329, end: 20200330

REACTIONS (1)
  - Drug-induced liver injury [Recovering/Resolving]

NARRATIVE: CASE EVENT DATE: 20200330
